FAERS Safety Report 26001222 (Version 1)
Quarter: 2025Q4

REPORT INFORMATION
  Report Type: Spontaneous
  Country: US (occurrence: None)
  Receive Date: 20251105
  Receipt Date: 20251105
  Transmission Date: 20260118
  Serious: Yes (Hospitalization)
  Sender: FDA-CTU
  Company Number: None

PATIENT
  Sex: Male

DRUGS (11)
  1. LENALIDOMIDE [Suspect]
     Active Substance: LENALIDOMIDE
     Indication: Follicle centre lymphoma, follicular grade I, II, III stage I
     Dosage: OTHER FREQUENCY : ONE TIME EACH DAY FOR 21 DAYS, FOLLOWED BY 7 DAYS OFF.  TAKE WHOLE WITH WATER, DO NOT BREAK, CHEW, O;?
     Route: 048
     Dates: start: 20250916
  2. ASPIRIN-81 CHW 81MG [Concomitant]
  3. CARVEDILOL TAB 12.5MG [Concomitant]
  4. IMODIUM A-D TAB 2MG [Concomitant]
  5. ISOSORB MONO TAB 30MG ER [Concomitant]
  6. LEVOTHYROXIN TAB 112MCG [Concomitant]
  7. LISINOPRIL TAB 1 0MG [Concomitant]
  8. METFORMIN TAB 1000MG [Concomitant]
  9. MULTIVITAMIN TAB ADULTS [Concomitant]
  10. NITROGL YCERN SUB 0.4MG [Concomitant]
  11. PAROXETINE TAB 10MG [Concomitant]

REACTIONS (3)
  - Diarrhoea [None]
  - Nausea [None]
  - Vomiting [None]
